FAERS Safety Report 7563544-X (Version None)
Quarter: 2011Q2

REPORT INFORMATION
  Report Type: 
  Country: None (occurrence: None)
  Receive Date: 20110622
  Receipt Date: 20110607
  Transmission Date: 20111010
  Serious: Yes (Hospitalization, Congenital Anomaly, Other)
  Sender: FDA-Public Use
  Company Number: DE-WATSON-2011-08022

PATIENT
  Sex: Male
  Weight: 2.6 kg

DRUGS (6)
  1. NOVALGINE [Suspect]
     Indication: PAIN
     Dosage: 2250 MG, DAILY
     Route: 064
  2. FLUOXETINE HCL [Suspect]
     Indication: DEPRESSION
     Dosage: 40 MG, DAILY
     Route: 064
     Dates: start: 20090328, end: 20090612
  3. FOLIC ACID [Concomitant]
     Indication: PROPHYLAXIS OF NEURAL TUBE DEFECT
     Dosage: 0.4 MG, DAILY
     Route: 064
  4. OMEPRAZOLE [Suspect]
     Indication: GASTRIC DISORDER
     Dosage: 40 MG, DAILY
     Route: 064
  5. LYRICA [Suspect]
     Indication: TRIGEMINAL NEURALGIA
     Dosage: 550 MG, DAILY
     Route: 064
     Dates: start: 20090328, end: 20090612
  6. HUMINSULIN NORMAL [Concomitant]
     Indication: GESTATIONAL DIABETES
     Dosage: UNK
     Route: 064
     Dates: end: 20091218

REACTIONS (5)
  - CYANOSIS NEONATAL [None]
  - SMALL FOR DATES BABY [None]
  - CONGENITAL AORTIC VALVE INCOMPETENCE [None]
  - CONGENITAL AORTIC VALVE STENOSIS [None]
  - ATRIAL SEPTAL DEFECT [None]
